FAERS Safety Report 6750908-7 (Version None)
Quarter: 2010Q2

REPORT INFORMATION
  Report Type: 
  Country: None (occurrence: None)
  Receive Date: 20100602
  Receipt Date: 20100520
  Transmission Date: 20101027
  Serious: Yes (Other)
  Sender: FDA-Public Use
  Company Number: PHHY2010AU32841

PATIENT
  Sex: Female

DRUGS (2)
  1. ACLASTA [Suspect]
     Dosage: 5 MG/ 100 ML
     Route: 042
     Dates: start: 20100520
  2. NORMAL SALINE [Concomitant]
     Dosage: 10 ML
     Route: 042

REACTIONS (8)
  - ASTHENIA [None]
  - BACK PAIN [None]
  - CIRCULATORY COLLAPSE [None]
  - DIZZINESS [None]
  - FALL [None]
  - NAUSEA [None]
  - PRESYNCOPE [None]
  - VOMITING [None]
